FAERS Safety Report 5305866-9 (Version None)
Quarter: 2007Q2

REPORT INFORMATION
  Report Type: 
  Country: None (occurrence: None)
  Receive Date: 20070424
  Receipt Date: 20070413
  Transmission Date: 20071010
  Serious: Yes (Other)
  Sender: FDA-Public Use
  Company Number: PHEH2007US03126

PATIENT
  Sex: Female

DRUGS (1)
  1. ENABLEX [Suspect]
     Dates: start: 20070201

REACTIONS (4)
  - ARTHRALGIA [None]
  - ASTHENIA [None]
  - BONE PAIN [None]
  - MYALGIA [None]
